FAERS Safety Report 9466603 (Version 3)
Quarter: 2013Q3

REPORT INFORMATION
  Report Type: Report from Study
  Country: US (occurrence: US)
  Receive Date: 20130820
  Receipt Date: 20130912
  Transmission Date: 20140515
  Serious: Yes (Hospitalization)
  Sender: FDA-Public Use
  Company Number: PHHO2013US010597

PATIENT
  Sex: Female
  Weight: 47.4 kg

DRUGS (11)
  1. FOLINIC ACID [Suspect]
     Indication: COLORECTAL CANCER
     Dosage: 616 MG, UNK
     Dates: start: 20130725, end: 20130725
  2. FLUOROURACIL [Suspect]
     Indication: COLORECTAL CANCER
     Dosage: 270 MG BOLUS AND 1232 MG/46 HOURS
     Dates: start: 20130725, end: 20130725
  3. AFINITOR [Suspect]
     Indication: COLORECTAL CANCER
     Dosage: 7.5 MG, DAILY
     Route: 048
     Dates: end: 20130731
  4. OXALIPLATIN SANDOZ [Suspect]
     Indication: COLORECTAL CANCER
     Dosage: 77 MG, UNK
     Dates: start: 20130725, end: 20130725
  5. AVASTIN [Suspect]
     Indication: COLORECTAL CANCER
     Dosage: 258 MG, UNK
     Dates: start: 20130725, end: 20130725
  6. KYTRIL [Concomitant]
  7. TRIMIX [Concomitant]
  8. MEGACE [Concomitant]
  9. MULTI-VIT [Concomitant]
  10. NYSTATIN [Concomitant]
  11. LEXAPRO [Concomitant]

REACTIONS (7)
  - Pneumonia aspiration [Recovering/Resolving]
  - Pseudomonas infection [Recovering/Resolving]
  - Nasal inflammation [Unknown]
  - Anaemia [Unknown]
  - Epistaxis [Unknown]
  - Pulmonary embolism [Unknown]
  - Deep vein thrombosis [Unknown]
